FAERS Safety Report 9153535 (Version 1)
Quarter: 2013Q1

REPORT INFORMATION
  Report Type: Spontaneous
  Country: GB (occurrence: None)
  Receive Date: 20130204
  Receipt Date: 20130204
  Transmission Date: 20140127
  Serious: Yes (Disabling)
  Sender: FDA-Public Use
  Company Number: 2013-01501

PATIENT
  Age: 28 Year
  Sex: Female

DRUGS (6)
  1. MORPHINE SULFATE [Suspect]
     Indication: SPINAL ANAESTHESIA
  2. BUPIVACAINE [Suspect]
     Indication: SPINAL ANAESTHESIA
  3. BUPIVACAINE [Suspect]
  4. FENTANYL [Concomitant]
  5. LEVOBUPIVACAINE [Concomitant]
  6. SYNTOCINON (OXYTOCIN) [Concomitant]

REACTIONS (7)
  - Complex regional pain syndrome [None]
  - Paraesthesia [None]
  - Hypoaesthesia [None]
  - Asthenia [None]
  - Sensory loss [None]
  - Burning sensation [None]
  - Exposure during pregnancy [None]
